FAERS Safety Report 7759783-5 (Version None)
Quarter: 2011Q3

REPORT INFORMATION
  Report Type: 
  Country: None (occurrence: None)
  Receive Date: 20110915
  Receipt Date: 20110902
  Transmission Date: 20111222
  Serious: Yes (Hospitalization, Other)
  Sender: FDA-Public Use
  Company Number: 2011-0825

PATIENT
  Age: 68 Year
  Sex: Female
  Weight: 70 kg

DRUGS (8)
  1. L-DOPA (LEVODOPA) [Concomitant]
  2. MADOPAR (MADOPAR) [Concomitant]
  3. PRAMIPEXOLE DIHYDROCHLORIDE [Concomitant]
  4. CILROTON (DOMPERIDONE) [Concomitant]
  5. ZOLOFT [Concomitant]
  6. APOKYN [Suspect]
     Indication: PARKINSON'S DISEASE
     Dosage: 2.5 MG/H FOR 14 HRS (CONTINUOUS INFUSION 14 HOURS), SUBCUTANEOUS
     Route: 058
     Dates: start: 20110302, end: 20110312
  7. APOKYN [Suspect]
     Indication: PARKINSON'S DISEASE
     Dosage: 2.5 MG/H FOR 14 HRS (CONTINUOUS INFUSION 14 HOURS), SUBCUTANEOUS
     Route: 058
     Dates: start: 20110301, end: 20110312
  8. COMTAN [Concomitant]

REACTIONS (4)
  - EXTRASYSTOLES [None]
  - CHEST DISCOMFORT [None]
  - PALPITATIONS [None]
  - HEART RATE DECREASED [None]
